FAERS Safety Report 9255258 (Version 5)
Quarter: 2013Q4

REPORT INFORMATION
  Report Type: Spontaneous
  Country: US (occurrence: None)
  Receive Date: 20130419
  Receipt Date: 20131009
  Transmission Date: 20140711
  Serious: Yes (Hospitalization)
  Sender: FDA-Public Use
  Company Number: 2013SGN00213

PATIENT
  Age: 55 Year
  Sex: Female

DRUGS (3)
  1. BRENTUXIMAB VEDOTIN [Suspect]
     Indication: HODGKIN^S DISEASE
     Route: 042
     Dates: start: 20130314, end: 20130328
  2. PRANDIN [Concomitant]
  3. JANUVIA (SITAGLIPTIN PHOSPHATE) [Concomitant]

REACTIONS (16)
  - Hyperglycaemia [None]
  - Hypokalaemia [None]
  - Dehydration [None]
  - Nausea [None]
  - Vomiting [None]
  - Asthenia [None]
  - Malaise [None]
  - Hypomagnesaemia [None]
  - Haemoglobin decreased [None]
  - Tachycardia [None]
  - Hypocalcaemia [None]
  - Hypoalbuminaemia [None]
  - Oedema peripheral [None]
  - Vitamin D deficiency [None]
  - Insulin resistance [None]
  - Streptococcal infection [None]
